FAERS Safety Report 13922012 (Version 4)
Quarter: 2017Q4

REPORT INFORMATION
  Report Type: Spontaneous
  Country: PK (occurrence: PK)
  Receive Date: 20170830
  Receipt Date: 20171017
  Transmission Date: 20180320
  Serious: Yes (Hospitalization, Other)
  Sender: FDA-Public Use
  Company Number: PK-NOVOPROD-560224

PATIENT
  Age: 60 Year
  Sex: Female

DRUGS (9)
  1. NEUROMET                           /00324901/ [Concomitant]
     Dosage: 500 ?G, BID
     Route: 065
  2. REVITALE B [Concomitant]
     Indication: VITAMIN SUPPLEMENTATION
     Dosage: UNK, QD
     Route: 065
  3. DULOSOFT [Concomitant]
     Dosage: 30 MG, QD
     Route: 065
  4. HILIN                              /00761001/ [Concomitant]
     Indication: NEUROPATHY PERIPHERAL
     Dosage: 50 MG, QD
     Route: 065
  5. MIXTARD HUMAN 70/30 [Suspect]
     Active Substance: INSULIN HUMAN
     Dosage: 44 U, QD (24 UNITS N THE MORNING, 20 UNITS IN THE EVENING)
     Route: 058
  6. MIXTARD HUMAN 70/30 [Suspect]
     Active Substance: INSULIN HUMAN
     Indication: TYPE 2 DIABETES MELLITUS
     Dosage: 36 U, QD (16 UNITS N THE MORNING, 20 UNITS IN THE EVENING)
     Route: 058
     Dates: start: 201505
  7. LOPRIN [Concomitant]
     Indication: ANTICOAGULANT THERAPY
     Dosage: 150 MG, QID
     Route: 065
  8. IBERET-FOLIC-500 [Concomitant]
     Indication: MINERAL SUPPLEMENTATION
     Dosage: UNK, QD
     Route: 065
  9. SITAGEN [Concomitant]
     Dosage: 50 MG, BID
     Route: 065

REACTIONS (3)
  - Suspected counterfeit product [Unknown]
  - Blood glucose increased [Not Recovered/Not Resolved]
  - Cerebrovascular accident [Not Recovered/Not Resolved]

NARRATIVE: CASE EVENT DATE: 20170819
